FAERS Safety Report 23662163 (Version 1)
Quarter: 2024Q1

REPORT INFORMATION
  Report Type: Spontaneous
  Country: CA (occurrence: None)
  Receive Date: 20240322
  Receipt Date: 20240322
  Transmission Date: 20240409
  Serious: Yes (Hospitalization)
  Sender: FDA-Public Use
  Company Number: CA-PFIZER INC-202400068746

PATIENT
  Age: 9 Decade
  Sex: Female

DRUGS (1)
  1. METHOTREXATE [Suspect]
     Active Substance: METHOTREXATE
     Indication: Corneal epithelial downgrowth

REACTIONS (3)
  - Product use in unapproved indication [Unknown]
  - Corneal disorder [Unknown]
  - Retinal pigment epitheliopathy [Unknown]
